FAERS Safety Report 8477361-X (Version None)
Quarter: 2012Q2

REPORT INFORMATION
  Report Type: 
  Country: None (occurrence: None)
  Receive Date: 20120620
  Receipt Date: 20120608
  Transmission Date: 20120825
  Serious: Yes (Hospitalization)
  Sender: FDA-Public Use
  Company Number: 2012SP031745

PATIENT
  Age: 58 Year
  Sex: Male

DRUGS (3)
  1. PEG-INTRON [Suspect]
     Indication: HEPATITIS C
     Dosage: 150 MCG;QW;SC
     Route: 058
     Dates: start: 20020626
  2. RIBAVIRIN [Suspect]
     Indication: PRODUCT USED FOR UNKNOWN INDICATION
     Dates: start: 20020601
  3. INCIVEK [Suspect]
     Indication: PRODUCT USED FOR UNKNOWN INDICATION
     Dates: start: 20120429

REACTIONS (9)
  - DEHYDRATION [None]
  - DYSGEUSIA [None]
  - DISORIENTATION [None]
  - FATIGUE [None]
  - COORDINATION ABNORMAL [None]
  - DYSARTHRIA [None]
  - DIARRHOEA [None]
  - ANAL PRURITUS [None]
  - AMMONIA INCREASED [None]
